FAERS Safety Report 6248544-4 (Version None)
Quarter: 2009Q2

REPORT INFORMATION
  Report Type: 
  Country: None (occurrence: None)
  Receive Date: 20090624
  Receipt Date: 20090624
  Transmission Date: 20091009
  Serious: Yes (Life-Threatening)
  Sender: FDA-Public Use
  Company Number: None

PATIENT
  Age: 39 Year
  Sex: Female
  Weight: 49.8957 kg

DRUGS (15)
  1. HYDROMORPHONE HCL [Suspect]
     Indication: PAIN
     Dosage: 0/0.6/15 PCA
     Dates: start: 20090401, end: 20090402
  2. HEPARIN [Concomitant]
  3. ASPIRIN [Concomitant]
  4. FOLIC ACID [Concomitant]
  5. GABAPENTIN [Concomitant]
  6. FUROSEMIDE [Concomitant]
  7. INSULIN [Concomitant]
  8. LANSOPRAZOLE [Concomitant]
  9. METHYLPREDNISOLONE [Concomitant]
  10. MYCOPHENOLATE MOFETIL [Concomitant]
  11. ONDANSETRON [Concomitant]
  12. PAROXETINE HCL [Concomitant]
  13. SIMVASTATIN [Concomitant]
  14. SIROLIMUS [Concomitant]
  15. TACROLIMUS [Concomitant]

REACTIONS (3)
  - CENTRAL-ALVEOLAR HYPOVENTILATION [None]
  - OXYGEN SATURATION DECREASED [None]
  - UNRESPONSIVE TO STIMULI [None]
